FAERS Safety Report 23672782 (Version 2)
Quarter: 2025Q2

REPORT INFORMATION
  Report Type: Spontaneous
  Country: US (occurrence: US)
  Receive Date: 20240326
  Receipt Date: 20250428
  Transmission Date: 20250716
  Serious: No
  Sender: CORIUM
  Company Number: US-CORIUM, LLC-2023COR000321

PATIENT

DRUGS (2)
  1. AZSTARYS [Suspect]
     Active Substance: DEXMETHYLPHENIDATE HYDROCHLORIDE\SERDEXMETHYLPHENIDATE CHLORIDE
     Indication: Attention deficit hyperactivity disorder
     Route: 065
     Dates: start: 20231001
  2. AZSTARYS [Suspect]
     Active Substance: DEXMETHYLPHENIDATE HYDROCHLORIDE\SERDEXMETHYLPHENIDATE CHLORIDE
     Route: 048

REACTIONS (13)
  - Dyspnoea [Recovered/Resolved]
  - Panic attack [Unknown]
  - Disorganised speech [Unknown]
  - Impaired work ability [Unknown]
  - Abnormal behaviour [Unknown]
  - Depersonalisation/derealisation disorder [Unknown]
  - Learning disorder [Unknown]
  - Blepharospasm [Unknown]
  - Dyskinesia [Recovered/Resolved]
  - Initial insomnia [Unknown]
  - Headache [Unknown]
  - Anxiety [Unknown]
  - Drug ineffective [Unknown]

NARRATIVE: CASE EVENT DATE: 20230101
